FAERS Safety Report 13362404 (Version 1)
Quarter: 2017Q1

REPORT INFORMATION
  Report Type: Spontaneous
  Country: US (occurrence: US)
  Receive Date: 20170322
  Receipt Date: 20170322
  Transmission Date: 20170429
  Serious: Yes (Hospitalization)
  Sender: FDA-Public Use
  Company Number: None

PATIENT
  Age: 63 Year
  Sex: Female
  Weight: 53.55 kg

DRUGS (2)
  1. ESOMEPRAZOLE [Suspect]
     Active Substance: ESOMEPRAZOLE
  2. SUCRALFATE. [Suspect]
     Active Substance: SUCRALFATE

REACTIONS (1)
  - Pancreatitis acute [None]

NARRATIVE: CASE EVENT DATE: 20170313
